FAERS Safety Report 9216007 (Version 1)
Quarter: 2013Q2

REPORT INFORMATION
  Report Type: Spontaneous
  Country: US (occurrence: US)
  Receive Date: 20130408
  Receipt Date: 20130408
  Transmission Date: 20140414
  Serious: No
  Sender: FDA-Public Use
  Company Number: US-JNJFOC-20130305914

PATIENT
  Age: 4 Decade
  Sex: Female

DRUGS (3)
  1. INVEGA SUSTENNA [Suspect]
     Indication: SCHIZOPHRENIA
     Route: 030
     Dates: start: 2007, end: 201207
  2. ATIVAN [Concomitant]
     Route: 048
  3. XANAX [Concomitant]
     Route: 048

REACTIONS (1)
  - Weight increased [Unknown]
